FAERS Safety Report 13159656 (Version 1)
Quarter: 2017Q1

REPORT INFORMATION
  Report Type: Spontaneous
  Country: FR (occurrence: FR)
  Receive Date: 20170127
  Receipt Date: 20170127
  Transmission Date: 20170428
  Serious: Yes (Other)
  Sender: FDA-Public Use
  Company Number: FR-OTSUKA-2017_001746

PATIENT
  Age: 37 Year
  Sex: Female

DRUGS (4)
  1. FLUDARABINE [Suspect]
     Active Substance: FLUDARABINE PHOSPHATE
     Indication: BONE MARROW TRANSPLANT
     Dosage: 78.5 MG, 1 CYCLE
     Route: 042
     Dates: start: 20161127, end: 20161130
  2. ZOVIRAX [Suspect]
     Active Substance: ACYCLOVIR
     Indication: VIRAL INFECTION
     Dosage: 1 G, 1 CYCLE
     Route: 042
     Dates: start: 20161127
  3. TEPADINA [Suspect]
     Active Substance: THIOTEPA
     Indication: BONE MARROW TRANSPLANT
     Dosage: 430 MG, 1 CYCLE
     Route: 042
     Dates: start: 20161126, end: 20161126
  4. BUSULFAN. [Suspect]
     Active Substance: BUSULFAN
     Indication: BONE MARROW TRANSPLANT
     Dosage: UNK
     Route: 042
     Dates: start: 20161127, end: 20161130

REACTIONS (4)
  - Rash papular [Recovered/Resolved]
  - Rash vesicular [Recovered/Resolved]
  - Rash generalised [Recovered/Resolved]
  - Product use issue [Unknown]

NARRATIVE: CASE EVENT DATE: 20161130
